FAERS Safety Report 18780183 (Version 3)
Quarter: 2021Q1

REPORT INFORMATION
  Report Type: Spontaneous
  Country: GB (occurrence: GB)
  Receive Date: 20210125
  Receipt Date: 20210316
  Transmission Date: 20210419
  Serious: Yes (Other)
  Sender: FDA-Public Use
  Company Number: GB-AMGEN-GBRSP2021012043

PATIENT
  Age: 3 Month
  Sex: Female

DRUGS (1)
  1. AIMOVIG [Suspect]
     Active Substance: ERENUMAB-AOOE
     Indication: FOETAL EXPOSURE DURING PREGNANCY
     Dosage: UNK (MATERNAL DOSE UNKNOWN)
     Route: 064

REACTIONS (4)
  - Cerebral haemorrhage [Unknown]
  - Illness [Unknown]
  - Epilepsy [Unknown]
  - Foetal exposure during pregnancy [Unknown]
